FAERS Safety Report 9433140 (Version 4)
Quarter: 2013Q3

REPORT INFORMATION
  Report Type: Spontaneous
  Country: US (occurrence: US)
  Receive Date: 20130731
  Receipt Date: 20130909
  Transmission Date: 20140515
  Serious: Yes (Hospitalization)
  Sender: FDA-Public Use
  Company Number: US-BAXTER-2013BAX030054

PATIENT
  Age: 64 Year
  Sex: Male

DRUGS (5)
  1. DIANEAL LOW CALCIUM [Suspect]
     Indication: PERITONEAL DIALYSIS
     Route: 033
  2. DIANEAL LOW CALCIUM [Suspect]
     Indication: PERITONEAL DIALYSIS
     Route: 033
  3. DIANEAL PD2 [Suspect]
     Indication: RENAL FAILURE CHRONIC
     Route: 033
  4. DIANEAL PD2 [Suspect]
     Indication: RENAL FAILURE CHRONIC
     Route: 033
  5. DIANEAL LOW CALCIUM (ULTRABAG) [Suspect]
     Indication: PERITONEAL DIALYSIS
     Route: 033

REACTIONS (3)
  - Pneumonia aspiration [Unknown]
  - Peritoneal dialysis complication [Recovering/Resolving]
  - Localised infection [Recovered/Resolved]
